FAERS Safety Report 9442049 (Version 2)
Quarter: 2014Q1

REPORT INFORMATION
  Report Type: Spontaneous
  Country: US (occurrence: US)
  Receive Date: 20130806
  Receipt Date: 20140204
  Transmission Date: 20141002
  Serious: Yes (Death, Other)
  Sender: FDA-Public Use
  Company Number: US-NOVOPROD-384483

PATIENT
  Age: 78 Year
  Sex: Female
  Weight: 120.18 kg

DRUGS (9)
  1. VICTOZA [Suspect]
     Indication: TYPE 2 DIABETES MELLITUS
     Dosage: UNKNOWN
     Route: 058
     Dates: start: 20111025, end: 20120203
  2. JANUVIA [Suspect]
     Indication: TYPE 2 DIABETES MELLITUS
     Dosage: 100 MG, QD
     Dates: start: 20090918, end: 20110721
  3. METFORMIN [Concomitant]
     Indication: TYPE 2 DIABETES MELLITUS
  4. HUMALOG [Concomitant]
     Indication: TYPE 2 DIABETES MELLITUS
  5. LEVEMIR [Concomitant]
     Indication: TYPE 2 DIABETES MELLITUS
     Route: 058
  6. NOVOLOG [Concomitant]
     Indication: TYPE 2 DIABETES MELLITUS
     Route: 058
  7. CITRACAL                           /00751520/ [Concomitant]
     Indication: BONE DISORDER
  8. CENTRUM SILVER                     /02363801/ [Concomitant]
     Indication: PRODUCT USED FOR UNKNOWN INDICATION
  9. GLUCERNA [Concomitant]
     Indication: PRODUCT USED FOR UNKNOWN INDICATION

REACTIONS (6)
  - Pancreatic carcinoma [Fatal]
  - Incoherent [Unknown]
  - Loss of consciousness [Unknown]
  - Dehydration [Unknown]
  - Blood disorder [Unknown]
  - Anaemia [Unknown]
